FAERS Safety Report 5316250-6 (Version None)
Quarter: 2007Q2

REPORT INFORMATION
  Report Type: 
  Country: None (occurrence: None)
  Receive Date: 20070503
  Receipt Date: 20070427
  Transmission Date: 20071010
  Serious: Yes (Other)
  Sender: FDA-Public Use
  Company Number: JP-MERCK-0705USA00085

PATIENT
  Age: 56 Year
  Sex: Female
  Weight: 70 kg

DRUGS (7)
  1. SINGULAIR [Suspect]
     Route: 048
     Dates: start: 20070330
  2. SINGULAIR [Suspect]
     Route: 048
  3. COMELIAN [Concomitant]
     Indication: GLOMERULONEPHRITIS PROLIFERATIVE
     Route: 048
     Dates: start: 19950517
  4. TRANDOLAPRIL [Concomitant]
     Indication: GLOMERULONEPHRITIS PROLIFERATIVE
     Route: 048
     Dates: start: 20070309
  5. GASTER [Concomitant]
     Indication: GASTRITIS
     Route: 048
     Dates: start: 20010808
  6. EPADEL [Concomitant]
     Indication: HYPERLIPIDAEMIA
     Route: 048
     Dates: start: 20010808
  7. PULMICORT [Concomitant]
     Indication: ASTHMA
     Dates: start: 20070330

REACTIONS (2)
  - COLD SWEAT [None]
  - SHOCK [None]
